FAERS Safety Report 6783491-0 (Version None)
Quarter: 2010Q2

REPORT INFORMATION
  Report Type: 
  Country: None (occurrence: None)
  Receive Date: 20100618
  Receipt Date: 20100519
  Transmission Date: 20101027
  Serious: Yes (Other)
  Sender: FDA-Public Use
  Company Number: 20108898

PATIENT
  Age: 62 Year
  Sex: Male

DRUGS (1)
  1. LIORESAL [Suspect]
     Indication: MUSCLE SPASTICITY
     Dosage: 50 MCG, DAILY, INTRATHECAL - SEE B5
     Route: 039

REACTIONS (4)
  - DYSPNOEA [None]
  - PALPITATIONS [None]
  - SEROMA [None]
  - SWELLING [None]
